FAERS Safety Report 7554943-0 (Version None)
Quarter: 2011Q2

REPORT INFORMATION
  Report Type: 
  Country: None (occurrence: None)
  Receive Date: 20110617
  Receipt Date: 20110615
  Transmission Date: 20111010
  Serious: Yes (Death)
  Sender: FDA-Public Use
  Company Number: GB-ABBOTT-11P-167-0729694-00

PATIENT
  Sex: Female

DRUGS (4)
  1. CARBAMAZEPINE [Suspect]
     Indication: EPILEPSY
  2. PHENOBARBITAL TAB [Suspect]
     Indication: EPILEPSY
  3. VALPROATE SODIUM [Suspect]
     Indication: EPILEPSY
  4. TOPIRAMATE [Suspect]
     Indication: EPILEPSY
     Route: 048

REACTIONS (3)
  - PANCREATITIS [None]
  - STATUS EPILEPTICUS [None]
  - RENAL FAILURE [None]
